FAERS Safety Report 24007111 (Version 3)
Quarter: 2024Q3

REPORT INFORMATION
  Report Type: Spontaneous
  Country: CN (occurrence: CN)
  Receive Date: 20240624
  Receipt Date: 20240930
  Transmission Date: 20241017
  Serious: Yes (Other)
  Sender: BRISTOL MYERS SQUIBB
  Company Number: CN-MLMSERVICE-20240613-PI094727-00323-1

PATIENT
  Age: 38 Year
  Sex: Female

DRUGS (10)
  1. TRIAMCINOLONE ACETONIDE [Suspect]
     Active Substance: TRIAMCINOLONE ACETONIDE
     Indication: Endocrine ophthalmopathy
     Dosage: 1 ML SYRINGE WAS USED TO EXTRACT 40 MG/ML TA, ROUTE: PERIBULBAR
     Dates: start: 20230103, end: 20230103
  2. TRIAMCINOLONE ACETONIDE [Suspect]
     Active Substance: TRIAMCINOLONE ACETONIDE
     Dosage: 1 ML SYRINGE WAS USED TO EXTRACT 40 MG/ML TA, ROUTE: PERIBULBAR
     Dates: start: 20230208, end: 20230208
  3. TRIAMCINOLONE ACETONIDE [Suspect]
     Active Substance: TRIAMCINOLONE ACETONIDE
     Dosage: 1 ML SYRINGE WAS USED TO EXTRACT 40 MG/ML TA, ROUTE: PERIBULBAR
     Dates: start: 20230404, end: 20230404
  4. PROPYLTHIOURACIL [Concomitant]
     Active Substance: PROPYLTHIOURACIL
     Dosage: 50 MG TID
  5. PROPARACAINE HYDROCHLORIDE [Concomitant]
     Active Substance: PROPARACAINE HYDROCHLORIDE
     Indication: Anaesthesia
     Dates: start: 20230404, end: 20230404
  6. PROPARACAINE HYDROCHLORIDE [Concomitant]
     Active Substance: PROPARACAINE HYDROCHLORIDE
     Dates: start: 20230103, end: 20230103
  7. PROPARACAINE HYDROCHLORIDE [Concomitant]
     Active Substance: PROPARACAINE HYDROCHLORIDE
     Dates: start: 20230208, end: 20230208
  8. POVIDONE-IODINE [Concomitant]
     Active Substance: POVIDONE-IODINE
     Indication: Infection prophylaxis
     Dates: start: 20230404, end: 20230404
  9. POVIDONE-IODINE [Concomitant]
     Active Substance: POVIDONE-IODINE
     Dates: start: 20230208, end: 20230208
  10. POVIDONE-IODINE [Concomitant]
     Active Substance: POVIDONE-IODINE
     Dates: start: 20230103, end: 20230103

REACTIONS (4)
  - Retinal artery occlusion [Unknown]
  - Retching [Unknown]
  - Nausea [Unknown]
  - Off label use [Unknown]

NARRATIVE: CASE EVENT DATE: 20230101
